FAERS Safety Report 13881685 (Version 6)
Quarter: 2018Q1

REPORT INFORMATION
  Report Type: Spontaneous
  Country: US (occurrence: US)
  Receive Date: 20170818
  Receipt Date: 20180206
  Transmission Date: 20180508
  Serious: Yes (Congenital Anomaly, Other)
  Sender: FDA-Public Use
  Company Number: PHEH2017US026150

PATIENT
  Sex: Female

DRUGS (1)
  1. ZOFRAN [Suspect]
     Active Substance: ONDANSETRON HYDROCHLORIDE
     Indication: FOETAL EXPOSURE DURING PREGNANCY
     Dosage: MOTHER^S DOSE: 1 DF, PRN
     Route: 064

REACTIONS (27)
  - Anxiety [Unknown]
  - Velopharyngeal incompetence [Unknown]
  - Conductive deafness [Unknown]
  - Attention deficit/hyperactivity disorder [Unknown]
  - Language disorder [Unknown]
  - Congenital anomaly [Unknown]
  - Otitis media [Unknown]
  - Otitis media chronic [Unknown]
  - Middle ear effusion [Unknown]
  - Deformity [Unknown]
  - Ear infection [Unknown]
  - Gastroenteritis [Unknown]
  - Cleft palate [Unknown]
  - Cleft lip [Unknown]
  - Pain [Unknown]
  - Emotional distress [Unknown]
  - Diarrhoea [Unknown]
  - Anhedonia [Unknown]
  - Decreased appetite [Unknown]
  - Upper respiratory tract infection [Unknown]
  - Eustachian tube dysfunction [Unknown]
  - Foetal exposure during pregnancy [Unknown]
  - Injury [Unknown]
  - Ear pain [Unknown]
  - Pharyngitis [Unknown]
  - Headache [Unknown]
  - Adjustment disorder with anxiety [Unknown]
